FAERS Safety Report 5083891-3 (Version None)
Quarter: 2006Q3

REPORT INFORMATION
  Report Type: 
  Country: None (occurrence: None)
  Receive Date: 20060727
  Receipt Date: 20060421
  Transmission Date: 20061208
  Serious: Yes (Other)
  Sender: FDA-Public Use
  Company Number: 2006055629

PATIENT
  Age: 25 Year
  Sex: Female
  Weight: 58.9676 kg

DRUGS (6)
  1. LYRICA [Suspect]
     Indication: NEURALGIA
     Dosage: 100 MG (50 MG, 2 IN 1 D)
     Dates: start: 20060418
  2. PREMARIN [Concomitant]
  3. MORPHINE [Concomitant]
  4. KLONOPIN [Concomitant]
  5. SEROQUEL [Concomitant]
  6. PROZAC [Concomitant]

REACTIONS (7)
  - CHILLS [None]
  - HEADACHE [None]
  - HYPERHIDROSIS [None]
  - INFLUENZA LIKE ILLNESS [None]
  - NAUSEA [None]
  - TREMOR [None]
  - VOMITING [None]
